FAERS Safety Report 16274784 (Version 3)
Quarter: 2019Q3

REPORT INFORMATION
  Report Type: Report from Study
  Country: ID (occurrence: ID)
  Receive Date: 20190506
  Receipt Date: 20190809
  Transmission Date: 20191004
  Serious: Yes (Death, Hospitalization)
  Sender: FDA-Public Use
  Company Number: ID-BAYER-2019-082659

PATIENT
  Age: 84 Year
  Sex: Female

DRUGS (2)
  1. NEXAVAR [Suspect]
     Active Substance: SORAFENIB
     Indication: HEPATOCELLULAR CARCINOMA
     Dosage: 200 MG, QD
     Route: 048
     Dates: start: 20190422, end: 20190425
  2. NEXAVAR [Suspect]
     Active Substance: SORAFENIB
     Indication: HEPATOCELLULAR CARCINOMA
     Dosage: 200 MG, BID
     Route: 048
     Dates: start: 20190426, end: 20190427

REACTIONS (19)
  - Haematemesis [Fatal]
  - Diarrhoea [Recovering/Resolving]
  - Abnormal faeces [Fatal]
  - Fluid retention [Fatal]
  - Hypotension [Fatal]
  - Gait disturbance [Fatal]
  - Fatigue [Fatal]
  - Abdominal pain [None]
  - Abdominal pain upper [Recovered/Resolved]
  - Off label use [Not Recovered/Not Resolved]
  - Abdominal pain upper [Fatal]
  - Dysstasia [Fatal]
  - Decreased appetite [Fatal]
  - Yellow skin [Fatal]
  - Muscular weakness [None]
  - Hepatocellular carcinoma [Fatal]
  - Urine output increased [Fatal]
  - Abdominal distension [Fatal]
  - Nausea [Fatal]

NARRATIVE: CASE EVENT DATE: 201904
